FAERS Safety Report 4693768-0 (Version None)
Quarter: 2005Q2

REPORT INFORMATION
  Report Type: 
  Country: None (occurrence: None)
  Receive Date: 20050617
  Receipt Date: 20050610
  Transmission Date: 20051028
  Serious: Yes (Hospitalization)
  Sender: FDA-Public Use
  Company Number: US-ABBOTT-05P-163-0303060-00

PATIENT
  Age: 67 Year
  Sex: Female

DRUGS (6)
  1. FENOFIBRATE (TRICOR TABLETS 160MG) [Suspect]
     Indication: DRUG USE FOR UNKNOWN INDICATION
  2. ROSUVASTATIN [Interacting]
     Indication: DRUG USE FOR UNKNOWN INDICATION
  3. ROSUVASTATIN [Interacting]
  4. HYDROCHLOROTHIAZIDE [Concomitant]
     Indication: DRUG USE FOR UNKNOWN INDICATION
     Dosage: NOT REPORTED
  5. OLMESARTAN [Concomitant]
     Indication: DRUG USE FOR UNKNOWN INDICATION
     Dosage: NOT REPORTED
  6. OXAPROZIN [Concomitant]
     Indication: DRUG USE FOR UNKNOWN INDICATION
     Dosage: NOT REPORTED

REACTIONS (2)
  - DRUG INTERACTION [None]
  - RHABDOMYOLYSIS [None]
